FAERS Safety Report 19920374 (Version 2)
Quarter: 2022Q4

REPORT INFORMATION
  Report Type: Spontaneous
  Country: CA (occurrence: CA)
  Receive Date: 20211005
  Receipt Date: 20221206
  Transmission Date: 20230113
  Serious: Yes (Other)
  Sender: FDA-Public Use
  Company Number: CA-SAMSUNG BIOEPIS-SB-2021-23224

PATIENT
  Age: 50 Year
  Sex: Female
  Weight: 85 kg

DRUGS (1)
  1. INFLIXIMAB [Suspect]
     Active Substance: INFLIXIMAB
     Indication: Crohn^s disease
     Route: 042

REACTIONS (9)
  - Aphthous ulcer [Recovered/Resolved]
  - Condition aggravated [Recovered/Resolved]
  - Uveitis [Recovered/Resolved]
  - Blood pressure diastolic increased [Recovered/Resolved]
  - Arthralgia [Recovered/Resolved]
  - Weight increased [Recovered/Resolved]
  - COVID-19 [Recovered/Resolved]
  - Intentional product use issue [Recovered/Resolved]
  - Off label use [Recovered/Resolved]
